FAERS Safety Report 19022188 (Version 1)
Quarter: 2021Q1

REPORT INFORMATION
  Report Type: Spontaneous
  Country: CA (occurrence: CA)
  Receive Date: 20210317
  Receipt Date: 20210317
  Transmission Date: 20210420
  Serious: Yes (Other)
  Sender: FDA-Public Use
  Company Number: CA-PFIZER INC-2021263787

PATIENT
  Age: 22 Month
  Sex: Female

DRUGS (3)
  1. CERUBIDINE [Suspect]
     Active Substance: DAUNORUBICIN HYDROCHLORIDE
     Dosage: UNK
  2. ETOPOSIDE. [Concomitant]
     Active Substance: ETOPOSIDE
     Dosage: UNK
  3. CYTARABINE. [Suspect]
     Active Substance: CYTARABINE
     Dosage: UNK

REACTIONS (1)
  - Febrile neutropenia [Unknown]
